FAERS Safety Report 16239757 (Version 4)
Quarter: 2019Q3

REPORT INFORMATION
  Report Type: Report from Study
  Country: DE (occurrence: DE)
  Receive Date: 20190425
  Receipt Date: 20190809
  Transmission Date: 20191004
  Serious: Yes (Hospitalization, Other)
  Sender: FDA-Public Use
  Company Number: DE-CLOVIS ONCOLOGY-CLO-2019-000783

PATIENT

DRUGS (10)
  1. RUCAPARIB [Suspect]
     Active Substance: RUCAPARIB
     Dosage: UNK MG, UNK
     Dates: start: 20190407, end: 20190514
  2. DENOSUMAB [Concomitant]
     Active Substance: DENOSUMAB
     Dosage: UNK
     Dates: start: 201804
  3. PAMORELIN [Concomitant]
     Active Substance: TRIPTORELIN PAMOATE
     Dosage: UNK
     Dates: start: 20181015
  4. CIPROBAY                           /00697201/ [Concomitant]
     Active Substance: CIPROFLOXACIN
     Dosage: UNK
     Dates: start: 20190328
  5. NIVOLUMAB [Suspect]
     Active Substance: NIVOLUMAB
     Indication: PROSTATE CANCER METASTATIC
     Dosage: 480 MG, UNK
     Dates: start: 20190108, end: 20190403
  6. RUCAPARIB [Suspect]
     Active Substance: RUCAPARIB
     Dosage: 1000 MG, UNK
     Dates: start: 20190306, end: 20190406
  7. TAMSULOSIN                         /01280302/ [Concomitant]
     Active Substance: TAMSULOSIN HYDROCHLORIDE
     Dosage: UNK
     Dates: start: 201706
  8. ALLOPURINOL. [Concomitant]
     Active Substance: ALLOPURINOL
     Dosage: UNK
     Dates: start: 2004
  9. RUCAPARIB [Suspect]
     Active Substance: RUCAPARIB
     Indication: PROSTATE CANCER METASTATIC
     Dosage: 600 MG, UNK
     Dates: start: 20190108, end: 20190205
  10. DEKRISTOL [Concomitant]
     Active Substance: CHOLECALCIFEROL
     Dosage: UNK
     Dates: start: 201805

REACTIONS (1)
  - Acute kidney injury [Recovered/Resolved]

NARRATIVE: CASE EVENT DATE: 20190412
